FAERS Safety Report 5389038-8 (Version None)
Quarter: 2007Q3

REPORT INFORMATION
  Report Type: 
  Country: None (occurrence: None)
  Receive Date: 20070717
  Receipt Date: 20070706
  Transmission Date: 20080115
  Serious: Yes (Hospitalization)
  Sender: FDA-Public Use
  Company Number: FR-JNJFOC-20070702073

PATIENT
  Age: 15 Year
  Sex: Male

DRUGS (3)
  1. REMICADE [Suspect]
     Indication: DRUG USE FOR UNKNOWN INDICATION
     Route: 042
  2. METHOTREXATE [Concomitant]
  3. CORTICOSTEROIDS [Concomitant]
     Dosage: FOR 18 MONTHS

REACTIONS (4)
  - ANXIETY [None]
  - INSOMNIA [None]
  - MAJOR DEPRESSION [None]
  - SOMNOLENCE [None]
